FAERS Safety Report 13769629 (Version 2)
Quarter: 2017Q3

REPORT INFORMATION
  Report Type: Spontaneous
  Country: JP (occurrence: JP)
  Receive Date: 20170719
  Receipt Date: 20170906
  Transmission Date: 20171127
  Serious: Yes (Death, Hospitalization, Other)
  Sender: FDA-Public Use
  Company Number: JP-JNJFOC-20170714182

PATIENT
  Age: 71 Year
  Sex: Male
  Weight: 48 kg

DRUGS (3)
  1. DIOVAN [Concomitant]
     Active Substance: VALSARTAN
     Dosage: DAILY DOSE 40 MG
     Route: 048
     Dates: end: 20150814
  2. ARTIST [Concomitant]
     Active Substance: CARVEDILOL
     Dosage: DAILY DOSE 6.25 MG
     Route: 048
     Dates: end: 20150814
  3. XARELTO [Suspect]
     Active Substance: RIVAROXABAN
     Indication: CEREBROVASCULAR ACCIDENT PROPHYLAXIS
     Route: 048
     Dates: end: 20150814

REACTIONS (6)
  - Brain oedema [Unknown]
  - Seizure [Unknown]
  - Respiratory disorder [Unknown]
  - Cerebral infarction [Unknown]
  - Haematoma [Unknown]
  - Putamen haemorrhage [Fatal]

NARRATIVE: CASE EVENT DATE: 20150814
